FAERS Safety Report 13171825 (Version 2)
Quarter: 2018Q1

REPORT INFORMATION
  Report Type: Spontaneous
  Country: US (occurrence: US)
  Receive Date: 20170201
  Receipt Date: 20180226
  Transmission Date: 20180508
  Serious: No
  Sender: FDA-Public Use
  Company Number: US-PFIZER INC-2017039077

PATIENT
  Age: 65 Year
  Sex: Female
  Weight: 90.72 kg

DRUGS (1)
  1. METHOTREXATE SODIUM. [Suspect]
     Active Substance: METHOTREXATE SODIUM
     Indication: RHEUMATOID ARTHRITIS
     Dosage: UNK

REACTIONS (5)
  - Weight increased [Unknown]
  - Nausea [Unknown]
  - Drug ineffective [Unknown]
  - Thyroid disorder [Unknown]
  - Influenza like illness [Unknown]
